FAERS Safety Report 5198882-1 (Version None)
Quarter: 2007Q1

REPORT INFORMATION
  Report Type: 
  Country: None (occurrence: None)
  Receive Date: 20070104
  Receipt Date: 20061221
  Transmission Date: 20070707
  Serious: Yes (Hospitalization)
  Sender: FDA-Public Use
  Company Number: JP-GILEAD-2006-0010903

PATIENT
  Age: 38 Year
  Sex: Male

DRUGS (3)
  1. VIREAD [Suspect]
     Indication: HIV INFECTION
     Route: 048
     Dates: start: 20051005
  2. EMTRIVA [Suspect]
     Indication: HIV INFECTION
     Route: 048
     Dates: start: 20051005
  3. STOCRIN [Concomitant]
     Indication: HIV INFECTION
     Dates: start: 20051005

REACTIONS (1)
  - NEPHROTIC SYNDROME [None]
